FAERS Safety Report 7731808-2 (Version None)
Quarter: 2011Q3

REPORT INFORMATION
  Report Type: 
  Country: None (occurrence: None)
  Receive Date: 20110906
  Receipt Date: 20110629
  Transmission Date: 20111222
  Serious: No
  Sender: FDA-Public Use
  Company Number: US-AMGEN-USASP2011033306

PATIENT
  Age: 71 Year
  Sex: Female

DRUGS (5)
  1. CALCIUM CARBONATE [Concomitant]
  2. NEURONTIN [Concomitant]
  3. VITAMIN D [Concomitant]
  4. TRAMADOL HYDROCHLORIDE [Concomitant]
  5. PROLIA [Suspect]
     Indication: OSTEOPOROSIS POSTMENOPAUSAL
     Dates: start: 20110411

REACTIONS (3)
  - BONE PAIN [None]
  - FEELING ABNORMAL [None]
  - PAIN [None]
